FAERS Safety Report 23955374 (Version 1)
Quarter: 2024Q2

REPORT INFORMATION
  Report Type: Spontaneous
  Country: NL (occurrence: NL)
  Receive Date: 20240610
  Receipt Date: 20240610
  Transmission Date: 20240715
  Serious: Yes (Life-Threatening, Other)
  Sender: FDA-Public Use
  Company Number: NL-PIRAMAL CRITICAL CARE LIMITED-2024-PPL-000432

PATIENT

DRUGS (11)
  1. BACLOFEN [Interacting]
     Active Substance: BACLOFEN
     Indication: Cerebral palsy
     Dosage: 507 MCG/D
     Route: 037
  2. BACLOFEN [Interacting]
     Active Substance: BACLOFEN
     Dosage: FLEXIBLE PROGRAMWITH FOUR BOLUSES (OF 30, 105, 80, AND 105 MCG) A DAY
     Route: 037
  3. MORPHINE [Interacting]
     Active Substance: MORPHINE
     Indication: Analgesic therapy
     Dosage: 4 MILLIGRAM
     Route: 042
  4. MORPHINE [Interacting]
     Active Substance: MORPHINE
     Dosage: 5 MCG/KG/H
     Route: 042
  5. ACETAMINOPHEN [Concomitant]
     Active Substance: ACETAMINOPHEN
     Indication: Analgesic therapy
     Dosage: UNK
     Route: 042
  6. BACLOFEN [Concomitant]
     Active Substance: BACLOFEN
     Indication: Product used for unknown indication
     Dosage: ORALLY, 5MG 3 DD WHEN NEEDED
     Route: 048
  7. VALPROIC ACID [Concomitant]
     Active Substance: VALPROIC ACID
     Indication: Product used for unknown indication
     Dosage: 500 MG, 2 DD
  8. PERAMPANEL [Concomitant]
     Active Substance: PERAMPANEL
     Indication: Product used for unknown indication
     Dosage: 4MG 1 DD
  9. APREPITANT [Concomitant]
     Active Substance: APREPITANT
     Indication: Product used for unknown indication
     Dosage: 80MG 1 DD
  10. OMEPRAZOLE [Concomitant]
     Active Substance: DONEPEZIL HYDROCHLORIDE\OMEPRAZOLE\OMEPRAZOLE MAGNESIUM
     Indication: Product used for unknown indication
     Dosage: 20MG, 2 DD
  11. GLYCOPYRRONIUM [Concomitant]
     Active Substance: GLYCOPYRRONIUM
     Indication: Product used for unknown indication
     Dosage: 1,280 ?G, 2 DD

REACTIONS (4)
  - Hypoventilation [Unknown]
  - Hypoxia [Recovered/Resolved]
  - Apnoea [Recovering/Resolving]
  - Drug interaction [Unknown]

NARRATIVE: CASE EVENT DATE: 20220101
